FAERS Safety Report 23371613 (Version 1)
Quarter: 2024Q1

REPORT INFORMATION
  Report Type: Spontaneous
  Country: CA (occurrence: CA)
  Receive Date: 20240105
  Receipt Date: 20240105
  Transmission Date: 20240410
  Serious: Yes (Other)
  Sender: FDA-Public Use
  Company Number: CA-FreseniusKabi-FK202400201

PATIENT
  Age: 41 Year
  Sex: Female

DRUGS (2)
  1. IDACIO [Suspect]
     Active Substance: ADALIMUMAB-AACF
     Indication: Colitis ulcerative
     Dosage: ROUTE OF ADMIN.- SUBCUTANEOUS?FORM OF ADMIN.- SOLUTION
  2. ADALIMUMAB [Concomitant]
     Active Substance: ADALIMUMAB\ISOPROPYL ALCOHOL
     Indication: Product used for unknown indication
     Dosage: ROUTE OF ADMIN.- SUBCUTANEOUS?FORM OF ADMIN.- SOLUTION SUBCUTANEOUS

REACTIONS (4)
  - Injection site pain [Unknown]
  - Malignant melanoma in situ [Unknown]
  - Product dose omission issue [Unknown]
  - Wrong product administered [Unknown]
